FAERS Safety Report 12390524 (Version 3)
Quarter: 2016Q2

REPORT INFORMATION
  Report Type: Report from Study
  Country: TR (occurrence: TR)
  Receive Date: 20160520
  Receipt Date: 20160615
  Transmission Date: 20160815
  Serious: Yes (Other)
  Sender: FDA-Public Use
  Company Number: TR-ROCHE-1761617

PATIENT
  Age: 62 Year
  Sex: Female
  Weight: 73 kg

DRUGS (9)
  1. COBIMETINIB [Suspect]
     Active Substance: COBIMETINIB
     Dosage: 1X2 TABLET
     Route: 048
     Dates: start: 20160415, end: 20160516
  2. VEMURAFENIB [Suspect]
     Active Substance: VEMURAFENIB
     Dosage: DOSE:2X480 MG
     Route: 048
     Dates: start: 20160415, end: 20160516
  3. COBIMETINIB [Suspect]
     Active Substance: COBIMETINIB
     Indication: METASTATIC MALIGNANT MELANOMA
     Route: 048
     Dates: start: 20160106
  4. CONTRAMAL [Concomitant]
     Active Substance: TRAMADOL HYDROCHLORIDE
     Indication: PAIN
     Route: 048
     Dates: start: 20160212
  5. VEMURAFENIB [Suspect]
     Active Substance: VEMURAFENIB
     Dosage: DOSE:2X960 MG
     Route: 048
     Dates: start: 20160128, end: 20160325
  6. COBIMETINIB [Suspect]
     Active Substance: COBIMETINIB
     Route: 048
     Dates: start: 20160302, end: 20160325
  7. ETOL [Concomitant]
     Active Substance: ETODOLAC
     Indication: PAIN
     Route: 048
     Dates: start: 20160209, end: 20160212
  8. VEMURAFENIB [Suspect]
     Active Substance: VEMURAFENIB
     Indication: METASTATIC MALIGNANT MELANOMA
     Dosage: DOSE:2X480 MG
     Route: 048
     Dates: start: 20160212
  9. TENOFOVIR [Concomitant]
     Active Substance: TENOFOVIR
     Indication: CHRONIC HEPATITIS B
     Route: 048
     Dates: start: 20160106

REACTIONS (3)
  - Acute kidney injury [Not Recovered/Not Resolved]
  - Urinary tract infection [Not Recovered/Not Resolved]
  - Acute kidney injury [Recovered/Resolved]

NARRATIVE: CASE EVENT DATE: 20160325
